FAERS Safety Report 12092716 (Version 1)
Quarter: 2016Q1

REPORT INFORMATION
  Report Type: Spontaneous
  Country: US (occurrence: None)
  Receive Date: 20160217
  Receipt Date: 20160217
  Transmission Date: 20160526
  Serious: Yes (Hospitalization)
  Sender: FDA-Public Use
  Company Number: None

PATIENT
  Age: 30 Year
  Sex: Female
  Weight: 50.3 kg

DRUGS (3)
  1. ACETAMINOPHEN. [Concomitant]
     Active Substance: ACETAMINOPHEN
  2. NACL [Concomitant]
     Active Substance: SODIUM CHLORIDE
  3. IRON DEXTRAN 50MG/ML WATSON PHARMACEUTICALS [Suspect]
     Active Substance: IRON DEXTRAN
     Indication: IRON DEFICIENCY ANAEMIA
     Route: 042
     Dates: start: 20160128, end: 20160128

REACTIONS (5)
  - Feeling abnormal [None]
  - Dysphonia [None]
  - Drug hypersensitivity [None]
  - Blood pressure diastolic decreased [None]
  - Sensation of foreign body [None]

NARRATIVE: CASE EVENT DATE: 20160129
